FAERS Safety Report 6100639-1 (Version None)
Quarter: 2009Q1

REPORT INFORMATION
  Report Type: 
  Country: None (occurrence: None)
  Receive Date: 20090303
  Receipt Date: 20090219
  Transmission Date: 20090719
  Serious: Yes (Hospitalization)
  Sender: FDA-Public Use
  Company Number: US-PFIZER INC-2009174248

PATIENT
  Age: 85 Year
  Sex: Female

DRUGS (15)
  1. SERTRALINE HCL [Suspect]
     Indication: DEPRESSION
     Dosage: 100 MG, UNK
  2. SERTRALINE HCL [Suspect]
     Indication: AGITATION
  3. LORAZEPAM [Suspect]
     Dosage: 4-6 MG, IN DIVIDED DOSES
  4. QUETIAPINE [Suspect]
     Indication: DELUSION
     Dosage: 400 MG, IN DIVIDED DOSES
  5. QUETIAPINE [Suspect]
     Indication: HALLUCINATION
  6. QUETIAPINE [Suspect]
     Indication: AGITATION
  7. DIVALPROEX [Suspect]
     Indication: MOOD SWINGS
     Dosage: 500 MG, UNK
  8. DIVALPROEX [Suspect]
     Indication: AGITATION
  9. LEVOTHYROXINE [Concomitant]
     Indication: HYPOTHYROIDISM
     Dosage: 25 UG, UNK
  10. DIGOXIN [Concomitant]
     Indication: CORONARY ARTERY DISEASE
     Dosage: 0.125 MG, UNK
  11. ENOXAPARIN SODIUM [Concomitant]
     Indication: ATRIAL FIBRILLATION
     Dosage: 40 MG, UNK
  12. ACETYLSALICYLIC ACID [Concomitant]
     Indication: ATRIAL FIBRILLATION
     Dosage: 325 MG, UNK
  13. METOPROLOL [Concomitant]
     Indication: HYPERTENSION
     Dosage: 100 MG
  14. SIMVASTATIN [Concomitant]
     Indication: HYPERCHOLESTEROLAEMIA
     Dosage: 40 MG, UNK
  15. PANTOPRAZOLE [Concomitant]
     Indication: GASTROOESOPHAGEAL REFLUX DISEASE
     Dosage: 40 MG, UNK

REACTIONS (6)
  - AGITATION [None]
  - CONFUSIONAL STATE [None]
  - DELIRIUM [None]
  - HALLUCINATION, VISUAL [None]
  - PARANOIA [None]
  - PSYCHOTIC DISORDER [None]
